FAERS Safety Report 12246674 (Version 2)
Quarter: 2016Q2

REPORT INFORMATION
  Report Type: Spontaneous
  Country: US (occurrence: US)
  Receive Date: 20160407
  Receipt Date: 20160505
  Transmission Date: 20160815
  Serious: No
  Sender: FDA-Public Use
  Company Number: US-BAXALTA-2016BLT002226

PATIENT
  Age: 23 Year
  Sex: Male

DRUGS (1)
  1. ADYNOVATE [Suspect]
     Active Substance: ANTIHEMOPHILIC FACTOR, HUMAN RECOMBINANT
     Indication: FACTOR VIII DEFICIENCY
     Dosage: 4386 U, UNK
     Route: 065
     Dates: start: 20160328

REACTIONS (1)
  - Coagulation factor VIII level increased [Recovered/Resolved]

NARRATIVE: CASE EVENT DATE: 20160328
